FAERS Safety Report 10516672 (Version 3)
Quarter: 2015Q3

REPORT INFORMATION
  Report Type: Report from Study
  Country: US (occurrence: US)
  Receive Date: 20141014
  Receipt Date: 20150818
  Transmission Date: 20151125
  Serious: No
  Sender: FDA-Public Use
  Company Number: US-GILEAD-2014-0118021

PATIENT
  Age: 74 Year
  Sex: Female

DRUGS (32)
  1. FERROUS SULFATE [Concomitant]
     Active Substance: FERROUS SULFATE\FERROUS SULFATE, DRIED
  2. METOPROLOL TARTRATE. [Concomitant]
     Active Substance: METOPROLOL TARTRATE
  3. LIVALO [Concomitant]
     Active Substance: PITAVASTATIN CALCIUM
  4. NASONEX [Concomitant]
     Active Substance: MOMETASONE FUROATE
  5. ELIQUIS [Concomitant]
     Active Substance: APIXABAN
  6. LIVALO [Concomitant]
     Active Substance: PITAVASTATIN CALCIUM
  7. LEVALBUTEROL                       /01419301/ [Concomitant]
  8. AMBRISENTAN [Suspect]
     Active Substance: AMBRISENTAN
     Indication: COR PULMONALE CHRONIC
     Dosage: 10 MG, QD
     Route: 065
     Dates: start: 20140715
  9. FERROUS SULFATE [Concomitant]
     Active Substance: FERROUS SULFATE\FERROUS SULFATE, DRIED
  10. PRAVASTATIN [Concomitant]
     Active Substance: PRAVASTATIN\PRAVASTATIN SODIUM
  11. SPIRONOLACTONE. [Concomitant]
     Active Substance: SPIRONOLACTONE
  12. PANTOPRAZOLE [Concomitant]
     Active Substance: PANTOPRAZOLE SODIUM
  13. DULERA [Concomitant]
     Active Substance: FORMOTEROL FUMARATE DIHYDRATE\MOMETASONE FUROATE
  14. IBANDRONATE SODIUM. [Concomitant]
     Active Substance: IBANDRONATE SODIUM
  15. SILDENAFIL. [Concomitant]
     Active Substance: SILDENAFIL
  16. ELIQUIS [Concomitant]
     Active Substance: APIXABAN
  17. PREDNISONE. [Concomitant]
     Active Substance: PREDNISONE
  18. CARTIA                             /00489702/ [Concomitant]
  19. XARELTO [Concomitant]
     Active Substance: RIVAROXABAN
  20. ALBUTEROL                          /00139501/ [Concomitant]
     Active Substance: ALBUTEROL
  21. PRAVASTATIN [Concomitant]
     Active Substance: PRAVASTATIN\PRAVASTATIN SODIUM
  22. PULMICORT TURBUHALER [Concomitant]
     Active Substance: BUDESONIDE
  23. LISINOPRIL. [Concomitant]
     Active Substance: LISINOPRIL
  24. CIPRODEX [Concomitant]
     Active Substance: CIPROFLOXACIN HYDROCHLORIDE\DEXAMETHASONE
  25. IBANDRONATE SODIUM. [Concomitant]
     Active Substance: IBANDRONATE SODIUM
  26. MULTAQ [Concomitant]
     Active Substance: DRONEDARONE
  27. MULTAQ [Concomitant]
     Active Substance: DRONEDARONE
  28. FUROSEMIDE. [Concomitant]
     Active Substance: FUROSEMIDE
  29. NYSTATIN. [Concomitant]
     Active Substance: NYSTATIN
  30. METOLAZONE. [Concomitant]
     Active Substance: METOLAZONE
  31. SILDENAFIL. [Concomitant]
     Active Substance: SILDENAFIL
  32. ADCIRCA [Concomitant]
     Active Substance: TADALAFIL

REACTIONS (2)
  - Nasal congestion [Not Recovered/Not Resolved]
  - Oedema peripheral [Unknown]

NARRATIVE: CASE EVENT DATE: 20140911
